FAERS Safety Report 4982882-8 (Version None)
Quarter: 2006Q2

REPORT INFORMATION
  Report Type: 
  Country: None (occurrence: None)
  Receive Date: 20060420
  Receipt Date: 20060411
  Transmission Date: 20061013
  Serious: Yes (Death)
  Sender: FDA-Public Use
  Company Number: USA-2006-0024020

PATIENT
  Age: 40 Year
  Sex: Male

DRUGS (2)
  1. OXYCONTIN [Suspect]
  2. METHADONE HCL [Suspect]

REACTIONS (3)
  - OVERDOSE [None]
  - POLYSUBSTANCE ABUSE [None]
  - SELF-MEDICATION [None]
